FAERS Safety Report 13805272 (Version 1)
Quarter: 2017Q3

REPORT INFORMATION
  Report Type: Report from Study
  Country: US (occurrence: US)
  Receive Date: 20170728
  Receipt Date: 20170728
  Transmission Date: 20171127
  Serious: Yes (Death, Other)
  Sender: FDA-Public Use
  Company Number: US-ROCHE-1025518

PATIENT
  Age: 50 Year
  Sex: Male
  Weight: 81.72 kg

DRUGS (1)
  1. BLINDED VISMODEGIB [Suspect]
     Active Substance: VISMODEGIB
     Indication: BASAL CELL CARCINOMA
     Route: 048
     Dates: start: 20101209, end: 20111223

REACTIONS (2)
  - Death [Fatal]
  - Laryngeal cancer [Unknown]

NARRATIVE: CASE EVENT DATE: 20111222
